FAERS Safety Report 5780244-7 (Version None)
Quarter: 2008Q2

REPORT INFORMATION
  Report Type: 
  Country: None (occurrence: None)
  Receive Date: 20080620
  Receipt Date: 20080612
  Transmission Date: 20081010
  Serious: Yes (Other)
  Sender: FDA-Public Use
  Company Number: PHHY2008US10883

PATIENT
  Sex: Male

DRUGS (1)
  1. EXJADE [Suspect]
     Dosage: 3000 MG, QD
     Route: 048
     Dates: start: 20080513

REACTIONS (2)
  - DRUG INEFFECTIVE [None]
  - LIVER DISORDER [None]
